FAERS Safety Report 13249606 (Version 1)
Quarter: 2017Q1

REPORT INFORMATION
  Report Type: Spontaneous
  Country: US (occurrence: US)
  Receive Date: 20170218
  Receipt Date: 20170218
  Transmission Date: 20170428
  Serious: No
  Sender: FDA-Public Use
  Company Number: US-ALLERGAN-1670278US

PATIENT
  Age: 64 Year
  Sex: Female
  Weight: 53.52 kg

DRUGS (2)
  1. RESTASIS [Suspect]
     Active Substance: CYCLOSPORINE
     Indication: DRY EYE
     Dosage: 2 GTT, BID
     Route: 047
     Dates: start: 20160820, end: 20160927
  2. ALLEGRA [Concomitant]
     Active Substance: FEXOFENADINE HYDROCHLORIDE
     Indication: HYPERSENSITIVITY
     Dosage: 90 MG, UNK
     Route: 048
     Dates: end: 20160920

REACTIONS (4)
  - Dyspepsia [Unknown]
  - Pharyngeal oedema [Unknown]
  - Enlarged uvula [Unknown]
  - Throat irritation [Unknown]

NARRATIVE: CASE EVENT DATE: 20160920
